FAERS Safety Report 10206353 (Version 1)
Quarter: 2014Q2

REPORT INFORMATION
  Report Type: Spontaneous
  Country: BR (occurrence: BR)
  Receive Date: 20140530
  Receipt Date: 20140530
  Transmission Date: 20141212
  Serious: Yes (Other)
  Sender: FDA-Public Use
  Company Number: PHHY2014BR065377

PATIENT
  Age: 17 Year
  Sex: Female

DRUGS (4)
  1. CARBAMAZEPINE [Suspect]
     Indication: CONVULSION
  2. PHENOBARBITAL [Suspect]
     Indication: CONVULSION
  3. EVEROLIMUS [Suspect]
     Dosage: 5 MG DAILY
  4. EVEROLIMUS [Suspect]
     Dosage: 12.5 MG DAILY

REACTIONS (7)
  - Angiofibroma [Recovering/Resolving]
  - Angiomyolipoma [Recovering/Resolving]
  - Renal cyst [Recovering/Resolving]
  - Hamartoma [Recovering/Resolving]
  - Diarrhoea [Unknown]
  - Hypertriglyceridaemia [Unknown]
  - Drug ineffective [Unknown]
